FAERS Safety Report 24976606 (Version 1)
Quarter: 2025Q1

REPORT INFORMATION
  Report Type: Spontaneous
  Country: FR (occurrence: FR)
  Receive Date: 20250217
  Receipt Date: 20250217
  Transmission Date: 20250409
  Serious: Yes (Death)
  Sender: MYLAN
  Company Number: None

PATIENT
  Age: 81 Year
  Sex: Male
  Weight: 54 kg

DRUGS (5)
  1. SILODOSIN [Suspect]
     Active Substance: SILODOSIN
     Indication: Benign prostatic hyperplasia
     Dosage: 1 DOSAGE FORM, QD (1 IN THE EVENING)
     Route: 048
     Dates: end: 20240517
  2. POLYETHYLENE GLYCOLS [Suspect]
     Active Substance: POLYETHYLENE GLYCOLS
     Indication: Constipation
     Dosage: 2 DOSAGE FORM, QD (2 SACHETS IN THE MORNING)
     Route: 048
     Dates: end: 20240517
  3. PRAZEPAM [Suspect]
     Active Substance: PRAZEPAM
     Indication: Anxiety
     Dosage: 2 DOSAGE FORM, QD (1 TABLET MORNING AND EVENING)
     Route: 048
     Dates: start: 20240514, end: 20240517
  4. BENSERAZIDE HYDROCHLORIDE\LEVODOPA [Suspect]
     Active Substance: BENSERAZIDE HYDROCHLORIDE\LEVODOPA
     Indication: Cognitive disorder
     Dosage: 8 DOSAGE FORM, QD (2 MORNING 2 NOON 2 SNACK 2 EVENING)
     Route: 048
     Dates: end: 20240517
  5. OXAZEPAM [Suspect]
     Active Substance: OXAZEPAM
     Indication: Cognitive disorder
     Route: 048
     Dates: end: 20240517

REACTIONS (1)
  - Choking [Fatal]

NARRATIVE: CASE EVENT DATE: 20240517
